FAERS Safety Report 11052277 (Version 1)
Quarter: 2015Q2

REPORT INFORMATION
  Report Type: Spontaneous
  Country: US (occurrence: None)
  Receive Date: 20150420
  Receipt Date: 20150420
  Transmission Date: 20150821
  Serious: No
  Sender: FDA-Public Use
  Company Number: None

PATIENT
  Age: 62 Year
  Sex: Female
  Weight: 67.2 kg

DRUGS (2)
  1. REGADENOSON [Suspect]
     Active Substance: REGADENOSON
     Indication: CARDIAC OPERATION
     Route: 042
     Dates: start: 20131114, end: 20131114
  2. REGADENOSON [Suspect]
     Active Substance: REGADENOSON
     Indication: VASCULAR OPERATION
     Route: 042
     Dates: start: 20131114, end: 20131114

REACTIONS (2)
  - Respiratory depression [None]
  - Headache [None]

NARRATIVE: CASE EVENT DATE: 20131114
